FAERS Safety Report 4501526-2 (Version None)
Quarter: 2004Q4

REPORT INFORMATION
  Report Type: 
  Country: None (occurrence: None)
  Receive Date: 20041109
  Receipt Date: 20041028
  Transmission Date: 20050328
  Serious: Yes (Hospitalization)
  Sender: FDA-Public Use
  Company Number: SUS1-2004-00710

PATIENT
  Age: 86 Year
  Sex: Female

DRUGS (4)
  1. PENTASA [Suspect]
     Indication: BEHCET'S SYNDROME
     Dosage: SEE IMAGE
     Dates: start: 20021024, end: 20030812
  2. PENTASA [Suspect]
     Indication: BEHCET'S SYNDROME
     Dosage: SEE IMAGE
     Dates: start: 20040813, end: 20040826
  3. PREDNISOLONE [Concomitant]
  4. COLCHICINE (COLCHICINE) [Concomitant]

REACTIONS (4)
  - HYPOALBUMINAEMIA [None]
  - INTERSTITIAL LUNG DISEASE [None]
  - MELAENA [None]
  - PLEURAL EFFUSION [None]
